FAERS Safety Report 8051733-X (Version None)
Quarter: 2012Q1

REPORT INFORMATION
  Report Type: 
  Country: None (occurrence: None)
  Receive Date: 20120118
  Receipt Date: 20120111
  Transmission Date: 20120608
  Serious: No
  Sender: FDA-Public Use
  Company Number: US-BIOGENIDEC-2012BI001389

PATIENT
  Age: 36 Year
  Sex: Female

DRUGS (1)
  1. TYSABRI [Suspect]
     Indication: MULTIPLE SCLEROSIS
     Route: 042
     Dates: start: 20081204

REACTIONS (5)
  - ABASIA [None]
  - MOBILITY DECREASED [None]
  - SPEECH DISORDER [None]
  - MULTIPLE SCLEROSIS RELAPSE [None]
  - APHASIA [None]
